FAERS Safety Report 15538758 (Version 2)
Quarter: 2018Q4

REPORT INFORMATION
  Report Type: Spontaneous
  Country: US (occurrence: US)
  Receive Date: 20181022
  Receipt Date: 20181228
  Transmission Date: 20190205
  Serious: Yes (Other)
  Sender: FDA-Public Use
  Company Number: US-SA-2018SA290823

PATIENT
  Age: 53 Year
  Sex: Female
  Weight: 99 kg

DRUGS (7)
  1. NEOSAR [Concomitant]
     Active Substance: CYCLOPHOSPHAMIDE
     Dosage: UNK UNK, UNK
     Route: 065
  2. CYTOXAN [Concomitant]
     Active Substance: CYCLOPHOSPHAMIDE
  3. DOXORUBICIN [Concomitant]
     Active Substance: DOXORUBICIN
     Route: 042
  4. ONDANSETRON [Concomitant]
     Active Substance: ONDANSETRON
  5. LORAZEPAM. [Concomitant]
     Active Substance: LORAZEPAM
     Route: 042
  6. TAXOTERE [Suspect]
     Active Substance: DOCETAXEL
     Indication: BREAST CANCER FEMALE
     Dosage: 160 MG, Q3W
     Route: 042
     Dates: start: 20070613, end: 20070613
  7. TAXOTERE [Suspect]
     Active Substance: DOCETAXEL
     Dosage: 160 MG, Q3W
     Route: 042
     Dates: start: 20070926, end: 20070926

REACTIONS (1)
  - Alopecia [Recovering/Resolving]

NARRATIVE: CASE EVENT DATE: 20070701
